FAERS Safety Report 24304516 (Version 12)
Quarter: 2025Q4

REPORT INFORMATION
  Report Type: Report from Study
  Country: IN (occurrence: IN)
  Receive Date: 20240910
  Receipt Date: 20251226
  Transmission Date: 20260118
  Serious: Yes (Hospitalization, Other)
  Sender: NOVARTIS
  Company Number: IN-002147023-NVSC2023IN280110

PATIENT
  Age: 78 Year
  Sex: Female

DRUGS (10)
  1. RIBOCICLIB [Suspect]
     Active Substance: RIBOCICLIB
     Indication: Breast cancer metastatic
     Dosage: 400 MG, QD
     Route: 048
     Dates: start: 20230604
  2. RIBOCICLIB [Suspect]
     Active Substance: RIBOCICLIB
     Indication: Hormone receptor positive HER2 negative breast cancer
     Dosage: 400 MG, QD (400 MG 0-1-0 ALTERNATE WITH 600MG 0-1-0 FOR 21DAYS FB 10 DAYS OFF)
     Route: 048
     Dates: start: 20230704
  3. RIBOCICLIB [Suspect]
     Active Substance: RIBOCICLIB
     Indication: Breast cancer
     Dosage: 600 MG, QD
     Route: 048
  4. RIBOCICLIB [Suspect]
     Active Substance: RIBOCICLIB
     Dosage: 400 MG, QD (400 MG ALTERNATE WITH 600 MG ONCE DAILY FOLLOWED BY 10 DAYS OFF)
     Route: 065
  5. RIBOCICLIB [Suspect]
     Active Substance: RIBOCICLIB
     Dosage: UNK
     Route: 065
  6. RIBOCICLIB [Suspect]
     Active Substance: RIBOCICLIB
     Dosage: UNK
     Route: 065
  7. RIBOCICLIB [Suspect]
     Active Substance: RIBOCICLIB
     Dosage: UNK, OTHER (KRYXANA 4OO MG ALTERRTATE WITH 600 MG ONCE OAILY)
     Route: 048
  8. RIBOCICLIB [Suspect]
     Active Substance: RIBOCICLIB
     Dosage: 400 MG - 600 MG ALTERNATE DAY 18 DAYS F/B 12 DAYS OFF), QD
     Route: 048
  9. FULVESTRANT [Concomitant]
     Active Substance: FULVESTRANT
     Indication: Product used for unknown indication
     Dosage: UNK
     Route: 065
     Dates: start: 20250913
  10. DOCETAXEL [Concomitant]
     Active Substance: DOCETAXEL
     Indication: Product used for unknown indication
     Dosage: UNK (4 # CAF FIB 2 #)
     Route: 065

REACTIONS (31)
  - Pneumonia [Unknown]
  - Asthenia [Unknown]
  - Neutropenia [Unknown]
  - White blood cell count abnormal [Unknown]
  - Neutrophil count abnormal [Unknown]
  - Back pain [Unknown]
  - Musculoskeletal discomfort [Unknown]
  - Arthralgia [Unknown]
  - Diarrhoea [Unknown]
  - Injection site discomfort [Unknown]
  - Soft tissue mass [Recovering/Resolving]
  - Monocyte count abnormal [Unknown]
  - Peripheral swelling [Unknown]
  - Lymphoedema [Unknown]
  - Haemoglobin abnormal [Unknown]
  - Blood creatinine abnormal [Unknown]
  - Blood albumin abnormal [Unknown]
  - Blood calcium abnormal [Unknown]
  - Blood sodium abnormal [Unknown]
  - Blood potassium abnormal [Unknown]
  - Blood thyroid stimulating hormone abnormal [Unknown]
  - Platelet count abnormal [Unknown]
  - Heart rate increased [Unknown]
  - Laboratory test abnormal [Unknown]
  - Body surface area decreased [Unknown]
  - Blood pressure increased [Unknown]
  - Cough [Unknown]
  - Nodule [Unknown]
  - Allergic bronchitis [Unknown]
  - Breath sounds abnormal [Unknown]
  - Off label use [Unknown]

NARRATIVE: CASE EVENT DATE: 20231006
